FAERS Safety Report 5123863-3 (Version None)
Quarter: 2006Q4

REPORT INFORMATION
  Report Type: 
  Country: None (occurrence: None)
  Receive Date: 20061010
  Receipt Date: 20061005
  Transmission Date: 20070319
  Serious: Yes (Hospitalization)
  Sender: FDA-Public Use
  Company Number: JP-JPN-A200604066

PATIENT
  Sex: Female

DRUGS (8)
  1. PAXIL [Suspect]
     Indication: DEPRESSION
     Dosage: 10MG PER DAY
     Route: 048
  2. FIRSTCIN [Suspect]
     Route: 065
  3. MINOCYCLINE HCL [Suspect]
     Route: 065
  4. DALACIN [Suspect]
     Route: 065
  5. CALONAL [Suspect]
     Route: 065
  6. CONSTAN [Concomitant]
     Route: 065
  7. HALOPERIDOL [Concomitant]
     Route: 065
  8. DORAL [Concomitant]
     Route: 065

REACTIONS (1)
  - DRUG HYPERSENSITIVITY [None]
